FAERS Safety Report 7084083-9 (Version None)
Quarter: 2010Q4

REPORT INFORMATION
  Report Type: 
  Country: None (occurrence: None)
  Receive Date: 20101026
  Receipt Date: 20101012
  Transmission Date: 20110411
  Serious: Yes (Other)
  Sender: FDA-Public Use
  Company Number: 2010P1001975

PATIENT
  Age: 44 Year
  Sex: Female
  Weight: 56.6996 kg

DRUGS (1)
  1. FENTANYL-25 [Suspect]
     Indication: NEOPLASM MALIGNANT
     Dosage: 25 MCG;Q72H;TDER
     Route: 062
     Dates: start: 20060101

REACTIONS (7)
  - DEATH OF RELATIVE [None]
  - FATIGUE [None]
  - OVARIAN CYST [None]
  - PLASMA VISCOSITY DECREASED [None]
  - SOMNOLENCE [None]
  - STRESS [None]
  - WEIGHT INCREASED [None]
